FAERS Safety Report 18473783 (Version 1)
Quarter: 2020Q4

REPORT INFORMATION
  Report Type: Spontaneous
  Country: FR (occurrence: FR)
  Receive Date: 20201106
  Receipt Date: 20201106
  Transmission Date: 20210114
  Serious: Yes (Hospitalization)
  Sender: FDA-Public Use
  Company Number: FR-ASTRAZENECA-2020SF42254

PATIENT
  Age: 45 Year
  Sex: Female
  Weight: 97 kg

DRUGS (11)
  1. REPAGLINIDE. [Concomitant]
     Active Substance: REPAGLINIDE
     Route: 048
  2. FUROSEMIDE. [Concomitant]
     Active Substance: FUROSEMIDE
     Dosage: 40 MG X0.5/DAY
     Route: 048
  3. METFORMINE [Concomitant]
     Active Substance: METFORMIN HYDROCHLORIDE
     Route: 048
  4. FORXIGA [Suspect]
     Active Substance: DAPAGLIFLOZIN
     Indication: TYPE 2 DIABETES MELLITUS
     Route: 048
     Dates: start: 20200929, end: 20201008
  5. OZEMPIC [Concomitant]
     Active Substance: SEMAGLUTIDE
     Route: 058
  6. BISOCE [Concomitant]
     Active Substance: BISOPROLOL
     Route: 048
  7. CLOPIDOGREL [Concomitant]
     Active Substance: CLOPIDOGREL BISULFATE
     Route: 048
  8. LEVOTHYROX [Concomitant]
     Active Substance: LEVOTHYROXINE
     Route: 048
  9. EPLERENONE. [Concomitant]
     Active Substance: EPLERENONE
     Route: 048
  10. ATORVASTATINE [Concomitant]
     Active Substance: ATORVASTATIN
     Route: 048
  11. COVERSYL [Concomitant]
     Active Substance: PERINDOPRIL
     Route: 048

REACTIONS (1)
  - Ventricular tachycardia [Recovering/Resolving]

NARRATIVE: CASE EVENT DATE: 202010
